FAERS Safety Report 11273157 (Version 2)
Quarter: 2015Q3

REPORT INFORMATION
  Report Type: Spontaneous
  Country: GB (occurrence: GB)
  Receive Date: 20150715
  Receipt Date: 20150805
  Transmission Date: 20151125
  Serious: Yes (Life-Threatening, Hospitalization)
  Sender: FDA-Public Use
  Company Number: GB-PFIZER INC-2015193233

PATIENT
  Age: 47 Year
  Sex: Female
  Weight: 37 kg

DRUGS (13)
  1. TYGACIL [Suspect]
     Active Substance: TIGECYCLINE
     Indication: ABDOMINAL SEPSIS
     Dosage: 50 MG, 2X/DAY
     Route: 042
     Dates: start: 20150407, end: 20150501
  2. FENTANYL. [Concomitant]
     Active Substance: FENTANYL
     Indication: ANALGESIC THERAPY
     Dosage: 50 ?G, UNK
     Route: 061
     Dates: start: 20150404
  3. TPN [Concomitant]
     Active Substance: AMINO ACIDS\DEXTROSE\ELECTROLYTES NOS\SOYBEAN OIL
  4. OMEPRAZOLE. [Concomitant]
     Active Substance: OMEPRAZOLE
     Indication: PROPHYLAXIS
     Dosage: 40 MG, 1X/DAY
  5. DALTEPARIN [Concomitant]
     Active Substance: DALTEPARIN
     Indication: CARDIOVASCULAR EVENT PROPHYLAXIS
     Dosage: 2500 IU, 1X/DAY
     Route: 058
  6. MEROPENEM. [Concomitant]
     Active Substance: MEROPENEM
     Indication: POST PROCEDURAL DISCHARGE
     Dosage: 1 G, 3X/DAY
     Route: 042
     Dates: start: 20150404, end: 20150501
  7. MEROPENEM. [Concomitant]
     Active Substance: MEROPENEM
     Indication: SEPSIS
     Dosage: 2 G, 3X/DAY
     Dates: start: 20150501, end: 20150508
  8. FLUCONAZOLE. [Concomitant]
     Active Substance: FLUCONAZOLE
     Dosage: 200 MG, 1X/DAY
     Route: 042
     Dates: start: 20150408, end: 20150427
  9. PARACETAMOL [Concomitant]
     Active Substance: ACETAMINOPHEN
     Indication: ANALGESIC THERAPY
     Dosage: 500 MG, 4X/DAY
     Route: 042
  10. FENTANYL. [Concomitant]
     Active Substance: FENTANYL
     Dosage: 37 ?G, UNK
     Dates: end: 20150508
  11. MEROPENEM. [Concomitant]
     Active Substance: MEROPENEM
     Indication: GASTROINTESTINAL SURGERY
  12. PARACETAMOL [Concomitant]
     Active Substance: ACETAMINOPHEN
     Indication: ANALGESIC THERAPY
     Dosage: 500 MG, 4X/DAY
     Route: 048
  13. OMEPRAZOLE. [Concomitant]
     Active Substance: OMEPRAZOLE
     Indication: PROPHYLAXIS
     Route: 048

REACTIONS (1)
  - Liver function test abnormal [Recovered/Resolved]

NARRATIVE: CASE EVENT DATE: 20150420
